FAERS Safety Report 17952637 (Version 2)
Quarter: 2020Q3

REPORT INFORMATION
  Report Type: Spontaneous
  Country: US (occurrence: US)
  Receive Date: 20200626
  Receipt Date: 20200810
  Transmission Date: 20201103
  Serious: Yes (Hospitalization, Other)
  Sender: FDA-Public Use
  Company Number: US-GILEAD-2020-0476321

PATIENT
  Age: 55 Year
  Sex: Male

DRUGS (5)
  1. FLUTICASONE PROPIONATE. [Suspect]
     Active Substance: FLUTICASONE PROPIONATE
     Dosage: UNK
     Route: 045
  2. TRIAMCINOLONE ACETONIDE. [Interacting]
     Active Substance: TRIAMCINOLONE ACETONIDE
     Indication: SYNOVIAL CYST
     Dosage: UNK UNK, ONCE
     Route: 014
  3. GENVOYA [Suspect]
     Active Substance: COBICISTAT\ELVITEGRAVIR\EMTRICITABINE\TENOFOVIR ALAFENAMIDE FUMARATE
     Indication: HIV INFECTION
     Route: 065
  4. FLUTICASONE PROPIONATE. [Suspect]
     Active Substance: FLUTICASONE PROPIONATE
     Indication: NASAL CONGESTION
     Dosage: INTERMITTENTLY
     Route: 045
  5. TRIAMCINOLONE ACETONIDE. [Interacting]
     Active Substance: TRIAMCINOLONE ACETONIDE
     Dosage: UNK UNK, ONCE
     Route: 014

REACTIONS (3)
  - Drug interaction [Recovering/Resolving]
  - Cushing^s syndrome [Recovering/Resolving]
  - Pulmonary embolism [Recovering/Resolving]
